FAERS Safety Report 8015473-5 (Version None)
Quarter: 2011Q4

REPORT INFORMATION
  Report Type: 
  Country: None (occurrence: None)
  Receive Date: 20111223
  Receipt Date: 20111209
  Transmission Date: 20120403
  Serious: Yes (Other)
  Sender: FDA-Public Use
  Company Number: IPC201112-003247

PATIENT
  Age: 68 Year
  Sex: Male

DRUGS (7)
  1. WARFARIN SODIUM [Concomitant]
  2. LISINOPRIL [Concomitant]
  3. METFORMIN HYDROCHLORIDE [Suspect]
  4. ATOVASTATIN [Concomitant]
  5. STAGLIPTIN [Concomitant]
  6. METOPROLOL SUCCINATE [Concomitant]
  7. GLIMIPRIDE [Concomitant]

REACTIONS (2)
  - ATRIAL FIBRILLATION [None]
  - LACTIC ACIDOSIS [None]
